FAERS Safety Report 8994904 (Version 2)
Quarter: 2013Q1

REPORT INFORMATION
  Report Type: Spontaneous
  Country: GB (occurrence: None)
  Receive Date: 20121221
  Receipt Date: 20130116
  Transmission Date: 20140127
  Serious: Yes (Other)
  Sender: FDA-Public Use
  Company Number: AUR-APL-2012-05384

PATIENT
  Age: 53 Year
  Sex: Male
  Weight: 75.8 kg

DRUGS (1)
  1. AMOXICILLIN+CLAVULANIC ACID(AMOXCILLIN, CLAVULANIC ACID) [Suspect]
     Indication: PRODUCT USED FOR UNKNOWN INDICATION

REACTIONS (3)
  - Rash generalised [None]
  - Dermatitis bullous [None]
  - Rash erythematous [None]
